FAERS Safety Report 16524377 (Version 1)
Quarter: 2019Q3

REPORT INFORMATION
  Report Type: Spontaneous
  Country: US (occurrence: US)
  Receive Date: 20190703
  Receipt Date: 20190703
  Transmission Date: 20191004
  Serious: No
  Sender: FDA-Public Use
  Company Number: US-BIOGEN-2019BI00719145

PATIENT
  Sex: Male
  Weight: 63.56 kg

DRUGS (1)
  1. AVONEX [Suspect]
     Active Substance: INTERFERON BETA-1A
     Indication: MULTIPLE SCLEROSIS
     Route: 065
     Dates: start: 201812, end: 20190222

REACTIONS (2)
  - Neutrophil count decreased [Unknown]
  - White blood cell count decreased [Recovered/Resolved]
